FAERS Safety Report 13418667 (Version 2)
Quarter: 2017Q3

REPORT INFORMATION
  Report Type: Spontaneous
  Country: BR (occurrence: BR)
  Receive Date: 20170406
  Receipt Date: 20170721
  Transmission Date: 20171127
  Serious: Yes (Other)
  Sender: FDA-Public Use
  Company Number: BR-ASTRAZENECA-2017SE35384

PATIENT
  Age: 72 Year
  Sex: Female

DRUGS (1)
  1. VANNAIR [Suspect]
     Active Substance: BUDESONIDE\FORMOTEROL FUMARATE DIHYDRATE
     Indication: ASTHMA
     Dosage: 80/4.5 UG, UNKNOWN FREQUENCY UNKNOWN
     Route: 055
     Dates: start: 2013

REACTIONS (2)
  - Dyspnoea [Not Recovered/Not Resolved]
  - Asthmatic crisis [Recovering/Resolving]
